FAERS Safety Report 8941563 (Version 1)
Quarter: 2012Q4

REPORT INFORMATION
  Report Type: 
  Country: US (occurrence: US)
  Receive Date: 20121203
  Receipt Date: 20121203
  Transmission Date: 20130627
  Serious: Yes (Other)
  Sender: FDA-Public Use
  Company Number: US-BAYER-2012-126025

PATIENT
  Age: 76 Year
  Sex: Male
  Weight: 98.87 kg

DRUGS (6)
  1. ALEVE CAPLET/TABLET,MIDOL EXTENDED RELIEF CAPLET [Suspect]
     Indication: ARTHRITIS
     Dosage: UNK
     Route: 048
     Dates: start: 2012, end: 2012
  2. BLOOD PRESSURE MEDICATION (NOS) [Concomitant]
  3. ALLOPURINOL [Concomitant]
  4. CHOLESTEROL MEDICATION [Concomitant]
  5. CLONAZEPAM [Concomitant]
  6. GABAPENTIN [Concomitant]

REACTIONS (2)
  - Renal injury [None]
  - Incorrect dose administered [None]
